FAERS Safety Report 4840977-3 (Version None)
Quarter: 2005Q4

REPORT INFORMATION
  Report Type: 
  Country: None (occurrence: None)
  Receive Date: 20051130
  Receipt Date: 20050812
  Transmission Date: 20060501
  Serious: No
  Sender: FDA-Public Use
  Company Number: US-BRISTOL-MYERS SQUIBB COMPANY-13075379

PATIENT
  Sex: Female
  Weight: 63 kg

DRUGS (4)
  1. ABILIFY [Suspect]
     Indication: BIPOLAR DISORDER
     Dosage: DOSAGE: PREVIOUSLY TOOK ABILIFY 15MG DAILY, THEN 10MG DAILY, THEN 5MG DAILY OVER 6 MONTHS
     Route: 048
  2. MULTI-VITAMIN [Concomitant]
  3. VITAMIN E [Concomitant]
  4. CALCIUM GLUCONATE [Concomitant]

REACTIONS (1)
  - BLOOD TRIGLYCERIDES INCREASED [None]
